FAERS Safety Report 26201422 (Version 1)
Quarter: 2025Q4

REPORT INFORMATION
  Report Type: Report from Study
  Country: US (occurrence: US)
  Receive Date: 20251226
  Receipt Date: 20251226
  Transmission Date: 20260118
  Serious: No
  Sender: ACADIA PHARMACEUTICALS
  Company Number: US-ACADIA PHARMACEUTICALS INC.-ACA-2025-PIM-013482

PATIENT
  Age: 80 Year
  Sex: Female

DRUGS (3)
  1. NUPLAZID [Suspect]
     Active Substance: PIMAVANSERIN TARTRATE
     Indication: Parkinson^s disease
     Dosage: 34 MILLIGRAM, QD
     Route: 048
     Dates: start: 202512
  2. APOMORPHINE HYDROCHLORIDE [Concomitant]
     Active Substance: APOMORPHINE HYDROCHLORIDE
     Dosage: INFUSE 1 CARTRIDGE UNDER THE SKIN FOR ?16 HRS (CONTINUOUS DOSE (MAX 6MG/HR OR 98MG/DAY))
  3. APOMORPHINE HYDROCHLORIDE [Concomitant]
     Active Substance: APOMORPHINE HYDROCHLORIDE
     Dosage: EXTRA DOSES (MAX 3 PER DAY)

REACTIONS (2)
  - Fatigue [Unknown]
  - Sluggishness [Unknown]

NARRATIVE: CASE EVENT DATE: 20251201
